FAERS Safety Report 24263262 (Version 1)
Quarter: 2024Q3

REPORT INFORMATION
  Report Type: Spontaneous
  Country: IN (occurrence: IN)
  Receive Date: 20240829
  Receipt Date: 20240829
  Transmission Date: 20241016
  Serious: Yes (Death, Hospitalization, Other)
  Sender: ASTELLAS
  Company Number: IN-ASTELLAS-2024-AER-000073

PATIENT
  Age: 62 Year
  Sex: Male

DRUGS (5)
  1. TACROLIMUS [Suspect]
     Active Substance: TACROLIMUS
     Indication: Liver transplant
     Route: 065
  2. ISAVUCONAZOLE [Suspect]
     Active Substance: ISAVUCONAZOLE
     Indication: Evidence based treatment
     Route: 065
  3. TEICOPLANIN [Concomitant]
     Active Substance: TEICOPLANIN
     Indication: Product used for unknown indication
     Route: 065
  4. METHYLPREDNISOLONE [Concomitant]
     Active Substance: METHYLPREDNISOLONE
     Indication: Liver transplant
     Route: 065
  5. FLUCONAZOLE [Concomitant]
     Active Substance: FLUCONAZOLE
     Indication: Product used for unknown indication
     Route: 065

REACTIONS (8)
  - Protothecosis [Fatal]
  - Device related infection [Fatal]
  - Multiple organ dysfunction syndrome [Fatal]
  - Septic shock [Unknown]
  - Cytomegalovirus viraemia [Unknown]
  - Klebsiella bacteraemia [Unknown]
  - Acinetobacter infection [Unknown]
  - Off label use [Unknown]
